FAERS Safety Report 15077294 (Version 1)
Quarter: 2018Q2

REPORT INFORMATION
  Report Type: Spontaneous
  Country: MY (occurrence: MY)
  Receive Date: 20180627
  Receipt Date: 20180627
  Transmission Date: 20180711
  Serious: Yes (Other)
  Sender: FDA-Public Use
  Company Number: MY-AMGEN-MYSSP2018084309

PATIENT
  Age: 47 Year
  Sex: Female

DRUGS (4)
  1. CINACALCET HCL [Suspect]
     Active Substance: CINACALCET HYDROCHLORIDE
     Indication: HYPERPARATHYROIDISM PRIMARY
     Dosage: UNK
     Route: 065
  2. ALFACALCIDOL [Concomitant]
     Active Substance: ALFACALCIDOL
     Dosage: UNK
  3. CINACALCET HCL [Suspect]
     Active Substance: CINACALCET HYDROCHLORIDE
     Indication: HYPERCALCAEMIA
     Dosage: 25 MG, BID
     Route: 065
  4. VITAMIN D2 [Concomitant]
     Active Substance: ERGOCALCIFEROL
     Indication: BLOOD 25-HYDROXYCHOLECALCIFEROL DECREASED
     Dosage: 0.25 MUG, QD

REACTIONS (7)
  - Hydrocephalus [Unknown]
  - Osteosclerosis [Unknown]
  - Nausea [Unknown]
  - Blood alkaline phosphatase increased [Unknown]
  - Vomiting [Unknown]
  - Decreased appetite [Unknown]
  - Osteomyelitis [Unknown]
